FAERS Safety Report 18699486 (Version 2)
Quarter: 2021Q1

REPORT INFORMATION
  Report Type: Spontaneous
  Country: US (occurrence: US)
  Receive Date: 20210105
  Receipt Date: 20210128
  Transmission Date: 20210419
  Serious: No
  Sender: FDA-Public Use
  Company Number: US-JNJFOC-20201255395

PATIENT
  Sex: Female

DRUGS (1)
  1. SIMPONI [Suspect]
     Active Substance: GOLIMUMAB
     Indication: PRODUCT USED FOR UNKNOWN INDICATION
     Route: 058

REACTIONS (5)
  - Product dose omission issue [Unknown]
  - Product storage error [Unknown]
  - Device malfunction [Unknown]
  - Product packaging quantity issue [Unknown]
  - Pain [Unknown]

NARRATIVE: CASE EVENT DATE: 20201228
